FAERS Safety Report 7768611-3 (Version None)
Quarter: 2011Q3

REPORT INFORMATION
  Report Type: 
  Country: None (occurrence: None)
  Receive Date: 20110922
  Receipt Date: 20110321
  Transmission Date: 20111222
  Serious: No
  Sender: FDA-Public Use
  Company Number: US-ASTRAZENECA-2011SE15921

PATIENT
  Age: 40 Year
  Sex: Female
  Weight: 112.5 kg

DRUGS (6)
  1. TRAMADOL HCL [Concomitant]
     Indication: ARTHRALGIA
  2. PERCOCET [Concomitant]
     Indication: PAIN
  3. SEROQUEL [Suspect]
     Indication: POST-TRAUMATIC STRESS DISORDER
     Route: 048
  4. AMBIEN [Concomitant]
     Indication: INSOMNIA
  5. CELEXA [Concomitant]
     Indication: POST-TRAUMATIC STRESS DISORDER
  6. ASPIRIN [Concomitant]
     Indication: THROMBOSIS PROPHYLAXIS

REACTIONS (1)
  - KNEE OPERATION [None]
